FAERS Safety Report 5043219-1 (Version None)
Quarter: 2006Q3

REPORT INFORMATION
  Report Type: 
  Country: None (occurrence: None)
  Receive Date: 20060703
  Receipt Date: 20060703
  Transmission Date: 20061208
  Serious: Yes (Hospitalization)
  Sender: FDA-Public Use
  Company Number: None

PATIENT
  Age: 19 Year
  Sex: Male
  Weight: 36.2878 kg

DRUGS (1)
  1. ZELNORM [Suspect]
     Indication: CONSTIPATION
     Dosage: 2MG   BID   PO
     Route: 048
     Dates: start: 20060610, end: 20060620

REACTIONS (1)
  - LIVER FUNCTION TEST ABNORMAL [None]
